FAERS Safety Report 9051852 (Version 1)
Quarter: 2013Q1

REPORT INFORMATION
  Report Type: Spontaneous
  Country: US (occurrence: US)
  Receive Date: 20130207
  Receipt Date: 20130207
  Transmission Date: 20140127
  Serious: Yes (Hospitalization)
  Sender: FDA-Public Use
  Company Number: US-BAYER-2013-015143

PATIENT
  Age: 33 Year
  Sex: Female

DRUGS (6)
  1. YASMIN [Suspect]
  2. IBUPROFEN [IBUPROFEN] [Concomitant]
  3. INDOMETHACIN [Concomitant]
     Dosage: 75 MG, UNK
  4. PROPOXYCAINE HYDROCHLORIDE [Concomitant]
     Dosage: 100-650
  5. LEVAQUIN [Concomitant]
     Dosage: 750 MG, UNK
  6. HYDROCODONE [HYDROCODONE] [Concomitant]
     Dosage: 5/500

REACTIONS (1)
  - Deep vein thrombosis [Recovered/Resolved]
